FAERS Safety Report 25180074 (Version 1)
Quarter: 2025Q2

REPORT INFORMATION
  Report Type: Spontaneous
  Country: US (occurrence: US)
  Receive Date: 20250409
  Receipt Date: 20250409
  Transmission Date: 20250717
  Serious: No
  Sender: MYLAN
  Company Number: US-MYLANLABS-2025M1027508

PATIENT
  Sex: Female

DRUGS (1)
  1. BREYNA [Suspect]
     Active Substance: BUDESONIDE\FORMOTEROL FUMARATE
     Indication: Product used for unknown indication
     Dosage: 160/9 MICROGRAM, BID (TWICE IN THE MORNING AND TWICE IN THE EVENING)

REACTIONS (3)
  - Wrong technique in product usage process [Unknown]
  - Device issue [Unknown]
  - Device mechanical issue [Unknown]
